FAERS Safety Report 22699641 (Version 2)
Quarter: 2023Q4

REPORT INFORMATION
  Report Type: Spontaneous
  Country: US (occurrence: US)
  Receive Date: 20230713
  Receipt Date: 20231218
  Transmission Date: 20240110
  Serious: No
  Sender: FDA-Public Use
  Company Number: US-AMRYT PHARMACEUTICALS DAC-AEGR006574

PATIENT
  Sex: Male

DRUGS (1)
  1. MYCAPSSA [Suspect]
     Active Substance: OCTREOTIDE
     Indication: Product used for unknown indication
     Dosage: 20 MILLIGRAM, BID
     Route: 048
     Dates: start: 20230215

REACTIONS (2)
  - Inappropriate schedule of product administration [Unknown]
  - Product communication issue [Unknown]
